FAERS Safety Report 5060376-1 (Version None)
Quarter: 2006Q3

REPORT INFORMATION
  Report Type: 
  Country: None (occurrence: None)
  Receive Date: 20060720
  Receipt Date: 20060714
  Transmission Date: 20061208
  Serious: Yes (Hospitalization)
  Sender: FDA-Public Use
  Company Number: 200612909GDS

PATIENT
  Age: 73 Year
  Sex: Male
  Weight: 73 kg

DRUGS (11)
  1. SORAFENIB (UNCODEABLE ^INVESTIGATIONAL DRUG^) [Suspect]
     Indication: HEPATIC NEOPLASM MALIGNANT
     Dosage: 200 MG, BID, ORAL; SEE IMAGE
     Route: 048
     Dates: start: 20060213, end: 20060328
  2. SORAFENIB (UNCODEABLE ^INVESTIGATIONAL DRUG^) [Suspect]
     Indication: HEPATIC NEOPLASM MALIGNANT
     Dosage: 200 MG, BID, ORAL; SEE IMAGE
     Route: 048
     Dates: start: 20060328, end: 20060414
  3. SORAFENIB (UNCODEABLE ^INVESTIGATIONAL DRUG^) [Suspect]
     Indication: HEPATIC NEOPLASM MALIGNANT
     Dosage: 200 MG, BID, ORAL; SEE IMAGE
     Route: 048
     Dates: start: 20060515, end: 20060610
  4. LASIX [Concomitant]
  5. DIGOXIN [Concomitant]
  6. SOLOSA [Concomitant]
  7. DILATREND [Concomitant]
  8. SEREVENT [Concomitant]
  9. AVANDIA [Concomitant]
  10. SPIRIVA [Concomitant]
  11. DIPEN [Concomitant]

REACTIONS (1)
  - ARTHRITIS [None]
